FAERS Safety Report 14191374 (Version 1)
Quarter: 2017Q4

REPORT INFORMATION
  Report Type: Spontaneous
  Country: AT (occurrence: AT)
  Receive Date: 20171115
  Receipt Date: 20171115
  Transmission Date: 20180321
  Serious: Yes (Hospitalization)
  Sender: FDA-Public Use
  Company Number: AT-PFIZER INC-2017485174

PATIENT
  Age: 27 Year
  Sex: Female

DRUGS (1)
  1. VIBRAVENOUS [Suspect]
     Active Substance: DOXYCYCLINE HYCLATE
     Indication: MOUTH CYST
     Dosage: 1 DF, UNK
     Dates: start: 20171006, end: 20171006

REACTIONS (3)
  - Rhinorrhoea [Recovered/Resolved]
  - Rash [Recovered/Resolved]
  - Chest discomfort [Recovered/Resolved]

NARRATIVE: CASE EVENT DATE: 20171006
